FAERS Safety Report 5922236-0 (Version None)
Quarter: 2008Q4

REPORT INFORMATION
  Report Type: 
  Country: None (occurrence: None)
  Receive Date: 20081015
  Receipt Date: 20081001
  Transmission Date: 20090506
  Serious: Yes (Hospitalization)
  Sender: FDA-Public Use
  Company Number: RFHE7600001SAE02

PATIENT
  Age: 51 Year
  Sex: Male
  Weight: 90.7194 kg

DRUGS (11)
  1. RIFAXIMIN (RIFAXIMIN) [Suspect]
     Indication: HEPATIC ENCEPHALOPATHY
     Dosage: 1100 MG (550 MG, 2 IN 1 D), ORAL
     Route: 048
     Dates: start: 20070131
  2. CIPROFLOXACIN [Suspect]
     Dosage: 107.1429 MG (750 MG, 1 IN 1 WK),ORAL
     Route: 048
  3. FLAGYL [Concomitant]
  4. QUESTRAN [Concomitant]
  5. ASPIRIN [Concomitant]
  6. ATORVASTATIN CALCIUM [Concomitant]
  7. CLOPIDOGREL [Concomitant]
  8. LASIX [Concomitant]
  9. PROPRANOLOL [Concomitant]
  10. SPIRONOLACTONE [Concomitant]
  11. LACTULOSE (LACATULOSE) [Concomitant]

REACTIONS (4)
  - CLOSTRIDIAL INFECTION [None]
  - DEHYDRATION [None]
  - DIARRHOEA [None]
  - PYREXIA [None]
